FAERS Safety Report 20490962 (Version 1)
Quarter: 2022Q1

REPORT INFORMATION
  Report Type: Spontaneous
  Country: US (occurrence: US)
  Receive Date: 20220218
  Receipt Date: 20220218
  Transmission Date: 20220424
  Serious: Yes (Death, Other)
  Sender: FDA-Public Use
  Company Number: US-AMGEN-USASP2022029004

PATIENT
  Sex: Female

DRUGS (14)
  1. LUMAKRAS [Suspect]
     Active Substance: SOTORASIB
     Indication: Lung neoplasm malignant
     Dosage: 960 MILLIGRAM, QD
     Route: 048
     Dates: start: 20211228
  2. ATORVASTATIN [Concomitant]
     Active Substance: ATORVASTATIN
  3. BUDESONIDE [Concomitant]
     Active Substance: BUDESONIDE
  4. DEXAMETHASONE [Concomitant]
     Active Substance: DEXAMETHASONE
  5. DILTIAZEM [Concomitant]
     Active Substance: DILTIAZEM
  6. FLUTICASONE [Concomitant]
     Active Substance: FLUTICASONE
  7. FOLIC ACID [Concomitant]
     Active Substance: FOLIC ACID
  8. FUROSEMIDE [Concomitant]
     Active Substance: FUROSEMIDE
  9. GLIPIZIDE [Concomitant]
     Active Substance: GLIPIZIDE
  10. KEPPRA [Concomitant]
     Active Substance: LEVETIRACETAM
  11. METOPROLOL [Concomitant]
     Active Substance: METOPROLOL
  12. MONTELUKAST [Concomitant]
     Active Substance: MONTELUKAST SODIUM
  13. PANTOPRAZOLE [Concomitant]
     Active Substance: PANTOPRAZOLE
  14. PROAIR HFA [Concomitant]
     Active Substance: ALBUTEROL SULFATE

REACTIONS (1)
  - Death [Fatal]
